FAERS Safety Report 4790987-X (Version None)
Quarter: 2005Q4

REPORT INFORMATION
  Report Type: 
  Country: None (occurrence: None)
  Receive Date: 20051005
  Receipt Date: 20050922
  Transmission Date: 20060501
  Serious: Yes (Other)
  Sender: FDA-Public Use
  Company Number: S04-USA-07915-01

PATIENT
  Age: 83 Year
  Sex: Male

DRUGS (22)
  1. NAMENDA [Suspect]
     Indication: DEMENTIA
     Dosage: 5 MG QD PO
     Route: 048
     Dates: start: 20041001, end: 20040101
  2. NAMENDA [Suspect]
     Indication: DEMENTIA
     Dosage: 5 MG BID PO
     Route: 048
     Dates: start: 20040101, end: 20040101
  3. NAMENDA [Suspect]
     Indication: DEMENTIA
     Dosage: 15 MG QD PO
     Route: 048
     Dates: start: 20040101, end: 20040101
  4. NAMENDA [Suspect]
     Indication: DEMENTIA
     Dosage: 10 MG BID PO
     Route: 048
     Dates: start: 20040101, end: 20041201
  5. ARICEPT [Concomitant]
  6. PROCRIT [Concomitant]
  7. DOXAZOSIN [Concomitant]
  8. ENALAPRIL [Concomitant]
  9. METOPROLOL [Concomitant]
  10. EFFEXOR [Concomitant]
  11. CLONAZEPAM [Concomitant]
  12. OMEPRAZOLE [Concomitant]
  13. TOLTERODINE [Concomitant]
  14. FOLIC ACID [Concomitant]
  15. SELENIUM SULFIDE [Concomitant]
  16. MULTI-VITAMIN [Concomitant]
  17. ASCORBIC ACID [Concomitant]
  18. SUPREME GREENS WITH MSM [Concomitant]
  19. VITAMIN E [Concomitant]
  20. MILK THISTLE [Concomitant]
  21. ZOMETA [Concomitant]
  22. ELIGARD (LEUPROLIDE ACETATE FOR INJECTABLE SUSPENSION) [Concomitant]

REACTIONS (21)
  - ASPARTATE AMINOTRANSFERASE INCREASED [None]
  - ASTHENIA [None]
  - BLOOD CALCIUM DECREASED [None]
  - BLOOD GLUCOSE INCREASED [None]
  - CELLULITIS [None]
  - CHOLELITHIASIS [None]
  - ELECTROCARDIOGRAM T WAVE INVERSION [None]
  - HYPERSENSITIVITY [None]
  - LYMPHATIC OBSTRUCTION [None]
  - LYMPHOEDEMA [None]
  - METASTASES TO BONE [None]
  - OEDEMA PERIPHERAL [None]
  - OSTEOSCLEROSIS [None]
  - PAIN IN EXTREMITY [None]
  - PLEURAL EFFUSION [None]
  - RENAL CYST [None]
  - TACHYCARDIA [None]
  - TENDERNESS [None]
  - THROMBOPHLEBITIS SUPERFICIAL [None]
  - TROUSSEAU'S SYNDROME [None]
  - WHITE BLOOD CELL COUNT DECREASED [None]
